FAERS Safety Report 4572249-9 (Version None)
Quarter: 2005Q1

REPORT INFORMATION
  Report Type: 
  Country: None (occurrence: None)
  Receive Date: 20050203
  Receipt Date: 20050128
  Transmission Date: 20050727
  Serious: Yes (Hospitalization)
  Sender: FDA-Public Use
  Company Number: FRWYE966411AUG04

PATIENT
  Age: 24 Year
  Sex: Male

DRUGS (4)
  1. EFFEXOR XR [Suspect]
     Dosage: 150 MG 1X PER 1 DAY ORAL
     Route: 048
     Dates: start: 20040301, end: 20040616
  2. FLUANXOL (FLUPENTIXOL DIHYDROCHLORIDE) [Suspect]
     Dosage: 1 DOSE 1X PER 1 DAY ORAL
     Route: 048
     Dates: start: 20040610
  3. ZYPREXA [Concomitant]
  4. LYSANXIA (PRAZEPAM) [Concomitant]

REACTIONS (17)
  - BLOOD BICARBONATE DECREASED [None]
  - BLOOD CREATINE PHOSPHOKINASE INCREASED [None]
  - BLOOD SODIUM DECREASED [None]
  - CHEST PAIN [None]
  - CONDITION AGGRAVATED [None]
  - CONVULSION [None]
  - DYSKINESIA [None]
  - HAEMODIALYSIS [None]
  - HYPERHIDROSIS [None]
  - HYPERTENSION [None]
  - MICROCYTIC ANAEMIA [None]
  - MUSCLE SPASMS [None]
  - RENAL FAILURE ACUTE [None]
  - TACHYPNOEA [None]
  - TUBULOINTERSTITIAL NEPHRITIS [None]
  - URINE ANALYSIS ABNORMAL [None]
  - WEIGHT INCREASED [None]
